FAERS Safety Report 11156102 (Version 2)
Quarter: 2015Q3

REPORT INFORMATION
  Report Type: Report from Study
  Country: US (occurrence: US)
  Receive Date: 20150602
  Receipt Date: 20150720
  Transmission Date: 20151125
  Serious: No
  Sender: FDA-Public Use
  Company Number: US-SA-2014SA064223

PATIENT
  Age: 54 Year
  Sex: Female

DRUGS (6)
  1. AUBAGIO [Suspect]
     Active Substance: TERIFLUNOMIDE
     Indication: MULTIPLE SCLEROSIS
     Route: 048
     Dates: start: 20140528, end: 20150102
  2. AUBAGIO [Suspect]
     Active Substance: TERIFLUNOMIDE
     Indication: MULTIPLE SCLEROSIS
     Route: 048
     Dates: start: 20150205
  3. AUBAGIO [Suspect]
     Active Substance: TERIFLUNOMIDE
     Indication: MULTIPLE SCLEROSIS
     Route: 048
     Dates: start: 20140413
  4. AUBAGIO [Suspect]
     Active Substance: TERIFLUNOMIDE
     Indication: MULTIPLE SCLEROSIS
     Route: 048
     Dates: end: 20140516
  5. CORTISONE [Concomitant]
     Active Substance: CORTISONE\HYDROCORTISONE
  6. PREDNISONE. [Concomitant]
     Active Substance: PREDNISONE

REACTIONS (26)
  - Drug dose omission [Unknown]
  - Pain of skin [Unknown]
  - Vertigo [Unknown]
  - Weight increased [Unknown]
  - Vitamin D decreased [Unknown]
  - Fall [Unknown]
  - Skin exfoliation [Unknown]
  - Memory impairment [Unknown]
  - Thyroid disorder [Unknown]
  - Depression [Recovering/Resolving]
  - Tremor [Not Recovered/Not Resolved]
  - Grip strength decreased [Recovering/Resolving]
  - Vomiting [Recovered/Resolved]
  - Headache [Not Recovered/Not Resolved]
  - Migraine [Recovering/Resolving]
  - Peripheral swelling [Unknown]
  - Asthenia [Unknown]
  - Scratch [Unknown]
  - Blood electrolytes abnormal [Unknown]
  - Fatigue [Unknown]
  - Gait disturbance [Unknown]
  - Confusional state [Unknown]
  - Pruritus [Unknown]
  - Mammogram abnormal [Unknown]
  - Abdominal discomfort [Recovered/Resolved]
  - Feeling abnormal [Unknown]

NARRATIVE: CASE EVENT DATE: 20140511
